FAERS Safety Report 14294614 (Version 1)
Quarter: 2017Q4

REPORT INFORMATION
  Report Type: Spontaneous
  Country: CA (occurrence: CA)
  Receive Date: 20171218
  Receipt Date: 20171218
  Transmission Date: 20180321
  Serious: Yes (Disabling)
  Sender: FDA-Public Use
  Company Number: CA-009507513-1710CAN000657

PATIENT
  Sex: Female
  Weight: 37 kg

DRUGS (2)
  1. KEYTRUDA [Suspect]
     Active Substance: PEMBROLIZUMAB
     Indication: NON-SMALL CELL LUNG CANCER
     Dosage: 2 MG/KG, Q 21 DAYS
     Route: 042
     Dates: start: 20170105, end: 20170608
  2. TEMAZEPAM. [Concomitant]
     Active Substance: TEMAZEPAM
     Indication: INSOMNIA
     Dosage: 15 MG, QHS
     Route: 048

REACTIONS (4)
  - Throat irritation [Recovering/Resolving]
  - Loose tooth [Not Recovered/Not Resolved]
  - Mastication disorder [Unknown]
  - Cough [Recovering/Resolving]

NARRATIVE: CASE EVENT DATE: 2017
